FAERS Safety Report 5398590-8 (Version None)
Quarter: 2007Q3

REPORT INFORMATION
  Report Type: 
  Country: None (occurrence: None)
  Receive Date: 20070725
  Receipt Date: 20070713
  Transmission Date: 20080115
  Serious: Yes (Life-Threatening, Other)
  Sender: FDA-Public Use
  Company Number: GXKR2007US06036

PATIENT
  Age: 44 Year
  Sex: Female

DRUGS (10)
  1. CITALOPRAM HYDROBROMIDE [Suspect]
     Indication: DEPRESSION
     Dosage: 20 MG, ORAL; 40 MG, ORAL
     Route: 048
  2. MEPERIDINE HCL [Suspect]
     Indication: DEPRESSION
     Dosage: TOTAL DOSE OF 230 MG OVER 8 HOURS, PARENTERAL
     Route: 051
  3. HYDROMORPHONE HCL [Concomitant]
  4. HYDROCODONE BITARTRATE/PARACETAMOL (HYDROCODONE, BITARTRATE, HYDROCODO [Concomitant]
  5. PROMETHAZINE [Suspect]
  6. GATIFLOXACIN [Concomitant]
  7. ZOLPIDEM TARTRATE [Concomitant]
  8. LANSOPRAZOLE [Concomitant]
  9. ENOXAPARIN SODIUM (ENOXAPARIN SODIUM, HEPARIN-FRACTION, SODIUM SALT) [Concomitant]
  10. FENTANYL [Concomitant]

REACTIONS (15)
  - AGITATION [None]
  - BLOOD PRESSURE SYSTOLIC INCREASED [None]
  - DEPRESSION [None]
  - DISORIENTATION [None]
  - DRUG INTERACTION [None]
  - HEART RATE INCREASED [None]
  - ILLUSION [None]
  - NAUSEA [None]
  - PARANOIA [None]
  - PLATELET COUNT INCREASED [None]
  - PYREXIA [None]
  - RESPIRATORY RATE INCREASED [None]
  - SEROTONIN SYNDROME [None]
  - WHITE BLOOD CELL COUNT INCREASED [None]
  - WOUND INFECTION [None]
